FAERS Safety Report 8121788-2 (Version None)
Quarter: 2012Q1

REPORT INFORMATION
  Report Type: 
  Country: None (occurrence: None)
  Receive Date: 20120207
  Receipt Date: 20120207
  Transmission Date: 20120608
  Serious: Yes (Hospitalization)
  Sender: FDA-Public Use
  Company Number: None

PATIENT
  Sex: Male
  Weight: 48.3 kg

DRUGS (4)
  1. BEVACIZUMAB (RHUMAB VEGF) [Suspect]
     Dosage: 262.5 MG
  2. VICODIN [Concomitant]
  3. FLUOROURACIL [Suspect]
     Dosage: 4424 MG
  4. ZOFRAN [Concomitant]

REACTIONS (5)
  - JAUNDICE [None]
  - RENAL FAILURE ACUTE [None]
  - METABOLIC ACIDOSIS [None]
  - CHOLANGITIS [None]
  - BACTERIAL SEPSIS [None]
